FAERS Safety Report 8192848-5 (Version None)
Quarter: 2012Q1

REPORT INFORMATION
  Report Type: 
  Country: None (occurrence: None)
  Receive Date: 20120308
  Receipt Date: 20120227
  Transmission Date: 20120608
  Serious: Yes (Hospitalization)
  Sender: FDA-Public Use
  Company Number: CA-JNJFOC-20120208269

PATIENT
  Sex: Female
  Weight: 61.3 kg

DRUGS (5)
  1. BENADRYL [Concomitant]
     Indication: PREMEDICATION
     Route: 048
  2. TYLENOL-500 [Concomitant]
     Indication: PREMEDICATION
     Route: 048
  3. SYNTHROID [Concomitant]
     Route: 065
  4. REMICADE [Suspect]
     Route: 042
     Dates: start: 20120227
  5. REMICADE [Suspect]
     Indication: CROHN'S DISEASE
     Route: 042
     Dates: start: 20120213

REACTIONS (6)
  - NAUSEA [None]
  - ABDOMINAL PAIN UPPER [None]
  - VOMITING [None]
  - INFLUENZA LIKE ILLNESS [None]
  - DIARRHOEA [None]
  - BACK PAIN [None]
